FAERS Safety Report 6550489-7 (Version None)
Quarter: 2010Q1

REPORT INFORMATION
  Report Type: 
  Country: None (occurrence: None)
  Receive Date: 20100125
  Receipt Date: 20091207
  Transmission Date: 20100710
  Serious: Yes (Hospitalization)
  Sender: FDA-Public Use
  Company Number: A0841047A

PATIENT
  Age: 63 Year
  Sex: Female

DRUGS (4)
  1. MELPHALAN HYDROCHLORIDE [Suspect]
     Indication: DRUG USE FOR UNKNOWN INDICATION
     Dosage: 8MG PER DAY
     Dates: start: 20091005, end: 20091008
  2. REVLIMID [Suspect]
     Indication: MULTIPLE MYELOMA
     Dosage: 10MG AT NIGHT
     Route: 048
     Dates: start: 20090928, end: 20091029
  3. ZOMETA [Concomitant]
  4. GABAPENTIN [Concomitant]

REACTIONS (4)
  - PAIN [None]
  - RASH VESICULAR [None]
  - SKIN EXFOLIATION [None]
  - SKIN LESION [None]
